FAERS Safety Report 14545869 (Version 1)
Quarter: 2018Q1

REPORT INFORMATION
  Report Type: Report from Study
  Country: US (occurrence: US)
  Receive Date: 20180219
  Receipt Date: 20180219
  Transmission Date: 20180509
  Serious: Yes (Other)
  Sender: FDA-Public Use
  Company Number: US-ROCHE-1914768

PATIENT

DRUGS (3)
  1. CAPECITABINE. [Suspect]
     Active Substance: CAPECITABINE
     Indication: SMALL INTESTINE ADENOCARCINOMA
     Route: 065
  2. IRINOTECAN [Suspect]
     Active Substance: IRINOTECAN
     Indication: SMALL INTESTINE ADENOCARCINOMA
     Route: 065
  3. OXALIPLATIN. [Suspect]
     Active Substance: OXALIPLATIN
     Indication: SMALL INTESTINE ADENOCARCINOMA
     Route: 065

REACTIONS (31)
  - Platelet count decreased [Unknown]
  - Epistaxis [Unknown]
  - Diarrhoea [Unknown]
  - Gingivitis [Unknown]
  - Peripheral sensory neuropathy [Unknown]
  - Lymphocyte count decreased [Unknown]
  - Immune system disorder [Unknown]
  - Renal failure [Unknown]
  - Decreased appetite [Unknown]
  - Dehydration [Unknown]
  - Infectious colitis [Unknown]
  - Hyperkalaemia [Unknown]
  - Weight decreased [Unknown]
  - Vomiting [Unknown]
  - Fatigue [Unknown]
  - Constipation [Unknown]
  - Cough [Unknown]
  - Small intestinal obstruction [Unknown]
  - White blood cell count decreased [Unknown]
  - Hypokalaemia [Unknown]
  - Febrile neutropenia [Unknown]
  - Deafness [Unknown]
  - Gastritis [Unknown]
  - Haemoglobin decreased [Unknown]
  - Blood bilirubin increased [Unknown]
  - Pneumonia [Unknown]
  - Depression [Unknown]
  - Hypersensitivity [Unknown]
  - Abdominal distension [Unknown]
  - Nausea [Unknown]
  - Neutrophil count decreased [Unknown]
